APPROVED DRUG PRODUCT: ENJUVIA
Active Ingredient: ESTROGENS, CONJUGATED SYNTHETIC B
Strength: 1.25MG **Federal Register determination that product was not discontinued or withdrawn for safety or effectiveness reasons**
Dosage Form/Route: TABLET;ORAL
Application: N021443 | Product #004
Applicant: ASPEN PHARMA USA INC
Approved: May 10, 2004 | RLD: No | RS: No | Type: DISCN